FAERS Safety Report 8162114-2 (Version None)
Quarter: 2012Q1

REPORT INFORMATION
  Report Type: 
  Country: None (occurrence: None)
  Receive Date: 20120224
  Receipt Date: 20111031
  Transmission Date: 20120608
  Serious: No
  Sender: FDA-Public Use
  Company Number: US-BRISTOL-MYERS SQUIBB COMPANY-16180671

PATIENT
  Age: 62 Year
  Sex: Male

DRUGS (2)
  1. METFORMIN HCL [Suspect]
  2. LANTUS [Suspect]
     Indication: TYPE 2 DIABETES MELLITUS
     Dosage: 1 DF = 20 UNITS
     Route: 058
     Dates: start: 20110101

REACTIONS (5)
  - WEIGHT DECREASED [None]
  - TOOTH ABSCESS [None]
  - INJECTION SITE PAIN [None]
  - GLYCOSYLATED HAEMOGLOBIN INCREASED [None]
  - BLOOD GLUCOSE INCREASED [None]
